FAERS Safety Report 8472697-0 (Version None)
Quarter: 2012Q2

REPORT INFORMATION
  Report Type: 
  Country: None (occurrence: None)
  Receive Date: 20120627
  Receipt Date: 20120619
  Transmission Date: 20120825
  Serious: Yes (Hospitalization)
  Sender: FDA-Public Use
  Company Number: FR-FRI-1000036620

PATIENT
  Age: 60 Year
  Sex: Female

DRUGS (1)
  1. NEBIVOLOL [Suspect]
     Indication: HYPERTENSION
     Route: 048
     Dates: end: 20120602

REACTIONS (5)
  - FATIGUE [None]
  - HEADACHE [None]
  - TINNITUS [None]
  - DYSPNOEA [None]
  - CHEST PAIN [None]
